FAERS Safety Report 6982172-8 (Version None)
Quarter: 2010Q3

REPORT INFORMATION
  Report Type: 
  Country: None (occurrence: None)
  Receive Date: 20100914
  Receipt Date: 20091202
  Transmission Date: 20110219
  Serious: Yes (Other)
  Sender: FDA-Public Use
  Company Number: US-PFIZER INC-2009305756

PATIENT
  Sex: Female
  Weight: 68.027 kg

DRUGS (10)
  1. LYRICA [Suspect]
     Indication: FIBROMYALGIA
     Dosage: 75 MG, 2X/DAY
     Dates: start: 20091001
  2. PREDNISONE [Suspect]
     Dosage: 30 MG, 1X/DAY
  3. IBANDRONATE SODIUM [Concomitant]
     Dosage: 150 MG, UNK
  4. VICODIN [Concomitant]
     Indication: PAIN
     Dosage: UNK
  5. VITAMIN D [Concomitant]
     Dosage: 400 MG, UNK
  6. NAPROXEN SODIUM [Concomitant]
     Dosage: UNK
  7. NEXIUM [Concomitant]
     Dosage: UNK
  8. TAMOXIFEN [Concomitant]
     Dosage: UNK
  9. TIZANIDINE HCL [Concomitant]
     Indication: MUSCLE RELAXANT THERAPY
     Dosage: UNK
  10. LIPITOR [Concomitant]
     Dosage: UNK

REACTIONS (9)
  - BALANCE DISORDER [None]
  - DISTURBANCE IN ATTENTION [None]
  - DIZZINESS [None]
  - DRY MOUTH [None]
  - FIBROMYALGIA [None]
  - INSOMNIA [None]
  - JOINT SWELLING [None]
  - NYSTAGMUS [None]
  - SOMNOLENCE [None]
